FAERS Safety Report 18793725 (Version 1)
Quarter: 2021Q1

REPORT INFORMATION
  Report Type: Spontaneous
  Country: US (occurrence: US)
  Receive Date: 20210126
  Receipt Date: 20210126
  Transmission Date: 20210419
  Serious: No
  Sender: FDA-Public Use
  Company Number: None

PATIENT
  Age: 24 Year
  Sex: Female
  Weight: 52.16 kg

DRUGS (7)
  1. NICOTINE. [Concomitant]
     Active Substance: NICOTINE
  2. NEXPLANON [Concomitant]
     Active Substance: ETONOGESTREL
  3. MIRENA [Suspect]
     Active Substance: LEVONORGESTREL
  4. PRAZOSIN. [Concomitant]
     Active Substance: PRAZOSIN
  5. LEXAPRO [Concomitant]
     Active Substance: ESCITALOPRAM OXALATE
  6. ZYRTEC [Concomitant]
     Active Substance: CETIRIZINE HYDROCHLORIDE
  7. CAFFEINE. [Concomitant]
     Active Substance: CAFFEINE

REACTIONS (3)
  - Abdominal discomfort [None]
  - Loss of consciousness [None]
  - Abdominal pain [None]
